FAERS Safety Report 5205998-X (Version None)
Quarter: 2006Q4

REPORT INFORMATION
  Report Type: 
  Country: None (occurrence: None)
  Receive Date: 20061027
  Receipt Date: 20060721
  Transmission Date: 20070319
  Serious: No
  Sender: FDA-Public Use
  Company Number: 200616208US

PATIENT
  Age: 79 Year
  Sex: Male

DRUGS (10)
  1. KETEK [Suspect]
     Indication: PERTUSSIS
     Dosage: 400 MG BID
     Dates: start: 20060321
  2. ASPIRIN [Concomitant]
  3. LASIX [Concomitant]
  4. AMARYL [Concomitant]
  5. ARANESP [Concomitant]
  6. ERGOCALCIFEROL, RETINOL, CALCIUM CARBONATE (CALCITROL) [Concomitant]
  7. NICOTINIC ACID, LOVASTATIN (ADVICOR) [Concomitant]
  8. COREG [Concomitant]
  9. PANTOPRAZOLE SODIUM [Concomitant]
  10. IMIPRAMINE HYDROCHLORIDE, CHLOROPYRAMINE HYDROCHLORIDE (NISOREX) [Concomitant]

REACTIONS (1)
  - DRUG INEFFECTIVE [None]
